FAERS Safety Report 9970286 (Version 2)
Quarter: 2014Q1

REPORT INFORMATION
  Report Type: Spontaneous
  Country: CA (occurrence: CA)
  Receive Date: 20140306
  Receipt Date: 20140328
  Transmission Date: 20141002
  Serious: Yes (Hospitalization, Other)
  Sender: FDA-Public Use
  Company Number: CA-AMGEN-CANSP2014015338

PATIENT
  Age: 70 Year
  Sex: Female
  Weight: 54 kg

DRUGS (6)
  1. PROLIA [Suspect]
     Indication: OSTEOPOROSIS POSTMENOPAUSAL
     Dosage: 60 MG, Q6MO
     Route: 058
     Dates: start: 20120725
  2. SYNTHROID [Concomitant]
     Indication: HYPOTHYROIDISM
     Dosage: 125 MG, UNK
     Route: 048
  3. ALDACTONE                          /00006201/ [Concomitant]
     Indication: BLOOD PRESSURE INCREASED
     Dosage: 25 MG, QD
     Route: 048
  4. DILTIAZEM [Concomitant]
     Indication: BLOOD PRESSURE INCREASED
     Dosage: 180 MG, UNK
     Route: 048
  5. AVALIDE [Concomitant]
     Indication: BLOOD PRESSURE INCREASED
     Dosage: 150/25 UNK, UNK
     Route: 048
  6. SANDOSTATIN LAR [Concomitant]
     Indication: MULTIPLE ENDOCRINE NEOPLASIA TYPE 1
     Dosage: 30 MG, QID
     Route: 030
     Dates: start: 2011

REACTIONS (2)
  - Parathyroid disorder [Recovered/Resolved]
  - Hypercalcaemia [Not Recovered/Not Resolved]
